FAERS Safety Report 23387352 (Version 1)
Quarter: 2024Q1

REPORT INFORMATION
  Report Type: Spontaneous
  Country: US (occurrence: US)
  Receive Date: 20240110
  Receipt Date: 20240110
  Transmission Date: 20240409
  Serious: Yes (Death, Hospitalization)
  Sender: FDA-Public Use
  Company Number: US-BAYER-2024A002320

PATIENT
  Age: 84 Year
  Sex: Male

DRUGS (4)
  1. ASPIRIN [Suspect]
     Active Substance: ASPIRIN
     Route: 048
  2. ACETAMINOPHEN [Suspect]
     Active Substance: ACETAMINOPHEN
  3. IBUPROFEN [Suspect]
     Active Substance: IBUPROFEN
  4. LISINOPRIL [Suspect]
     Active Substance: LISINOPRIL

REACTIONS (2)
  - Toxicity to various agents [Fatal]
  - Intentional overdose [Fatal]
